FAERS Safety Report 9808035 (Version 1)
Quarter: 2014Q1

REPORT INFORMATION
  Report Type: Spontaneous
  Country: US (occurrence: US)
  Receive Date: 20140110
  Receipt Date: 20140110
  Transmission Date: 20141002
  Serious: Yes (Death)
  Sender: FDA-Public Use
  Company Number: US-GLAXOSMITHKLINE-A1055384A

PATIENT
  Age: 83 Year
  Sex: Male

DRUGS (11)
  1. PROMACTA [Suspect]
     Indication: PLATELET COUNT DECREASED
     Dosage: 50MG PER DAY
     Route: 048
     Dates: start: 20120412
  2. OMEPRAZOLE [Concomitant]
  3. SIMVASTATIN [Concomitant]
  4. LEVOTHYROXINE [Concomitant]
  5. METOPROLOL TARTRATE [Concomitant]
  6. TRAZODONE [Concomitant]
  7. GLUCOSAMINE/CHONDROITIN [Concomitant]
  8. VITAMINS [Concomitant]
  9. ACETAMINOPHEN [Concomitant]
  10. CO Q 10 [Concomitant]
  11. IRON [Concomitant]

REACTIONS (3)
  - Thrombocytopenia [Fatal]
  - Myelodysplastic syndrome [Fatal]
  - Leukaemia [Unknown]
